FAERS Safety Report 18506974 (Version 4)
Quarter: 2023Q2

REPORT INFORMATION
  Report Type: Spontaneous
  Country: US (occurrence: US)
  Receive Date: 20201116
  Receipt Date: 20230405
  Transmission Date: 20230722
  Serious: Yes (Other)
  Sender: FDA-Public Use
  Company Number: US-PFIZER INC-2020445399

PATIENT
  Age: 57 Year
  Sex: Female
  Weight: 77.098 kg

DRUGS (1)
  1. IBRANCE [Suspect]
     Active Substance: PALBOCICLIB
     Indication: Breast cancer female
     Dosage: 125 MG, CYCLIC (DAILY 21 DAYS)
     Route: 048
     Dates: start: 20201030

REACTIONS (8)
  - COVID-19 [Unknown]
  - Nausea [Unknown]
  - Anosmia [Unknown]
  - Menopause [Unknown]
  - Night sweats [Unknown]
  - Fatigue [Unknown]
  - Brain fog [Unknown]
  - Haemoglobin decreased [Unknown]

NARRATIVE: CASE EVENT DATE: 20200101
